FAERS Safety Report 6488301-7 (Version None)
Quarter: 2009Q4

REPORT INFORMATION
  Report Type: 
  Country: None (occurrence: None)
  Receive Date: 20091123
  Receipt Date: 20091012
  Transmission Date: 20100525
  Serious: No
  Sender: FDA-Public Use
  Company Number: 8053242

PATIENT
  Age: 39 Year
  Sex: Male
  Weight: 79.5 kg

DRUGS (2)
  1. CIMZIA [Suspect]
     Indication: CROHN'S DISEASE
     Dosage: 400 MG SC
     Route: 058
     Dates: start: 20091009
  2. PREDNISONE [Concomitant]

REACTIONS (5)
  - HEADACHE [None]
  - LACRIMATION INCREASED [None]
  - RESPIRATORY TRACT CONGESTION [None]
  - TREMOR [None]
  - VISION BLURRED [None]
